FAERS Safety Report 7604926-7 (Version None)
Quarter: 2011Q3

REPORT INFORMATION
  Report Type: 
  Country: None (occurrence: None)
  Receive Date: 20110713
  Receipt Date: 20110704
  Transmission Date: 20111222
  Serious: Yes (Hospitalization, Disabling)
  Sender: FDA-Public Use
  Company Number: IL-BRISTOL-MYERS SQUIBB COMPANY-15893555

PATIENT
  Age: 63 Year
  Sex: Female

DRUGS (3)
  1. PREDNISONE [Concomitant]
  2. MITOTANE [Suspect]
     Indication: ADRENOCORTICAL CARCINOMA
     Dosage: 06NOV03-10MAY11(7YEARS)1.5G/D 31MAY11-UNK 0.5G/D INT ON 10MAY11 AND RESTARTED ON 31MAY11
     Route: 048
     Dates: start: 20031106
  3. FLORINEF [Concomitant]

REACTIONS (5)
  - SPEECH DISORDER [None]
  - VOMITING [None]
  - HYPONATRAEMIA [None]
  - TREMOR [None]
  - ASTHENIA [None]
